FAERS Safety Report 10157994 (Version 1)
Quarter: 2014Q2

REPORT INFORMATION
  Report Type: Spontaneous
  Country: CN (occurrence: CN)
  Receive Date: 20140507
  Receipt Date: 20140507
  Transmission Date: 20141212
  Serious: Yes (Hospitalization)
  Sender: FDA-Public Use
  Company Number: CN-GLAXOSMITHKLINE-B0984042A

PATIENT
  Age: 86 Year
  Sex: Male
  Weight: 55 kg

DRUGS (4)
  1. SERETIDE [Suspect]
     Indication: ASTHMA
     Dosage: 1PUFF PER DAY
     Route: 055
     Dates: start: 201401, end: 20140402
  2. MOXIFLOXACIN HYDROCHLORIDE [Concomitant]
     Indication: ASTHMA
     Dosage: 1TAB PER DAY
     Route: 048
     Dates: start: 20140330, end: 20140330
  3. METHOXYPHENAMINE [Concomitant]
     Indication: ASTHMA
     Dosage: 2CAP THREE TIMES PER DAY
     Route: 048
     Dates: start: 20140330
  4. SALBUTAMOL [Concomitant]
     Indication: ASTHMA

REACTIONS (5)
  - Overdose [Unknown]
  - Tremor [Recovered/Resolved]
  - Heart rate increased [Recovered/Resolved]
  - Dry mouth [Recovered/Resolved]
  - Drug administration error [Unknown]
